FAERS Safety Report 8934957 (Version 2)
Quarter: 2012Q4

REPORT INFORMATION
  Report Type: Report from Study
  Country: US (occurrence: US)
  Receive Date: 20121129
  Receipt Date: 20121217
  Transmission Date: 20130627
  Serious: Yes (Hospitalization)
  Sender: FDA-Public Use
  Company Number: US-ACTELION-A-US2012-75099

PATIENT
  Age: 62 Year
  Sex: Female

DRUGS (1)
  1. TRACLEER [Suspect]
     Indication: PULMONARY ARTERIAL HYPERTENSION
     Dosage: UNK
     Route: 048

REACTIONS (10)
  - Weight decreased [Recovered/Resolved]
  - Small intestinal obstruction [Recovered/Resolved]
  - Autoimmune disorder [Unknown]
  - Thyroid disorder [Unknown]
  - Blood calcium decreased [Unknown]
  - Skin ulcer [Not Recovered/Not Resolved]
  - Nasal dryness [Unknown]
  - Fatigue [Unknown]
  - Anaemia [Unknown]
  - Throat irritation [Unknown]
